FAERS Safety Report 10040581 (Version 1)
Quarter: 2014Q1

REPORT INFORMATION
  Report Type: Spontaneous
  Country: US (occurrence: US)
  Receive Date: 20140327
  Receipt Date: 20140327
  Transmission Date: 20141002
  Serious: Yes (Other)
  Sender: FDA-Public Use
  Company Number: US-AMGEN-USASP2014020351

PATIENT
  Age: 85 Year
  Sex: Female

DRUGS (7)
  1. VINCRISTINE [Concomitant]
     Indication: T-CELL LYMPHOMA
     Dosage: UNK
     Dates: start: 20140311
  2. NEULASTA [Suspect]
     Indication: PRODUCT USED FOR UNKNOWN INDICATION
     Dosage: 6 MG, UNK
     Route: 065
     Dates: start: 20140313
  3. ETOPOSIDE [Concomitant]
     Indication: T-CELL LYMPHOMA
     Dosage: UNK
     Dates: start: 20140310
  4. ETOPOSIDE [Concomitant]
     Dosage: UNK
     Dates: start: 20140311
  5. ETOPOSIDE [Concomitant]
     Dosage: UNK
     Dates: start: 20140312
  6. CYCLOPHOSPHAMIDE [Concomitant]
     Indication: T-CELL LYMPHOMA
     Dosage: UNK
     Dates: start: 20140311
  7. DOXORUBICIN [Concomitant]
     Indication: T-CELL LYMPHOMA
     Dosage: UNK
     Dates: start: 20140311

REACTIONS (2)
  - Neutrophil count abnormal [Unknown]
  - Drug ineffective [Unknown]
